FAERS Safety Report 4950881-8 (Version None)
Quarter: 2006Q1

REPORT INFORMATION
  Report Type: 
  Country: None (occurrence: None)
  Receive Date: 20060315
  Receipt Date: 20060303
  Transmission Date: 20060701
  Serious: Yes (Disabling)
  Sender: FDA-Public Use
  Company Number: S06-UKI-01203-01

PATIENT
  Age: 42 Year
  Sex: Male

DRUGS (1)
  1. CITALOPRAM HYDROBROMIDE [Suspect]
     Indication: EMOTIONAL DISTRESS
     Dosage: 20 MG QD PO
     Route: 048
     Dates: start: 20050218, end: 20050501

REACTIONS (7)
  - AFFECT LABILITY [None]
  - AGGRESSION [None]
  - HALLUCINATION [None]
  - HOMICIDAL IDEATION [None]
  - INSOMNIA [None]
  - IRRITABILITY [None]
  - PSYCHOTIC DISORDER [None]
